FAERS Safety Report 8136475-4 (Version None)
Quarter: 2012Q1

REPORT INFORMATION
  Report Type: 
  Country: None (occurrence: None)
  Receive Date: 20120214
  Receipt Date: 20120202
  Transmission Date: 20120608
  Serious: Yes (Hospitalization, Other)
  Sender: FDA-Public Use
  Company Number: US-ELI_LILLY_AND_COMPANY-US201201001609

PATIENT
  Sex: Male
  Weight: 135.5 kg

DRUGS (5)
  1. GLUCOSAMINE CHONDROITIN + MSM [Concomitant]
  2. VITAMIN D [Concomitant]
  3. ECHINACEA SPP [Concomitant]
  4. IRON COMPLEX                       /00023501/ [Concomitant]
  5. FORTEO [Suspect]
     Dosage: UNK
     Dates: start: 20111115

REACTIONS (6)
  - HAEMORRHAGE [None]
  - BLOOD BLISTER [None]
  - ASPIRATION [None]
  - HOSPITALISATION [None]
  - COUGH [None]
  - HAEMOPTYSIS [None]
